FAERS Safety Report 21250229 (Version 3)
Quarter: 2022Q3

REPORT INFORMATION
  Report Type: Report from Study
  Country: US (occurrence: US)
  Receive Date: 20220824
  Receipt Date: 20220901
  Transmission Date: 20221026
  Serious: No
  Sender: FDA-Public Use
  Company Number: US-NOVARTISTESTPH-NVSC2022US189426

PATIENT
  Age: 15 Year
  Sex: Male

DRUGS (1)
  1. OMNITROPE [Suspect]
     Active Substance: SOMATROPIN
     Indication: Short stature
     Dosage: 0.46 ML, QD (STRENGTH: 5 MG/ML)
     Route: 058
     Dates: start: 20220718

REACTIONS (1)
  - Injection site mass [Unknown]

NARRATIVE: CASE EVENT DATE: 20220821
